FAERS Safety Report 10290644 (Version 5)
Quarter: 2014Q3

REPORT INFORMATION
  Report Type: Spontaneous
  Country: IT (occurrence: None)
  Receive Date: 20140708
  Receipt Date: 20140815
  Transmission Date: 20150326
  Serious: Yes (Hospitalization)
  Sender: FDA-Public Use
  Company Number: AUR-APL-2014-07179

PATIENT
  Age: 41 Year
  Sex: Female

DRUGS (2)
  1. CITALOPRAM (CITALOPRAM) UNKNOWN [Suspect]
     Active Substance: CITALOPRAM HYDROBROMIDE
     Indication: DEPRESSION
     Dates: start: 20130125
  2. PRAZENE [Suspect]
     Active Substance: PRAZEPAM
     Indication: DEPRESSION
     Dates: start: 20130125, end: 20130125

REACTIONS (6)
  - Sopor [None]
  - Unresponsive to stimuli [None]
  - Mydriasis [None]
  - Drug abuse [None]
  - Toxicity to various agents [None]
  - Hyporeflexia [None]

NARRATIVE: CASE EVENT DATE: 20130125
